FAERS Safety Report 7530618-9 (Version None)
Quarter: 2011Q2

REPORT INFORMATION
  Report Type: 
  Country: None (occurrence: None)
  Receive Date: 20110607
  Receipt Date: 20110524
  Transmission Date: 20111010
  Serious: Yes (Hospitalization)
  Sender: FDA-Public Use
  Company Number: JP-BAYER-2011-042616

PATIENT
  Age: 83 Year
  Sex: Male

DRUGS (2)
  1. ACETYLSALICYLIC ACID SRT [Suspect]
     Indication: ANGINA PECTORIS
     Route: 048
  2. ANTIBIOTICS [Concomitant]
     Indication: INFECTED NEOPLASM
     Dosage: UNK
     Route: 065
     Dates: start: 20100830

REACTIONS (4)
  - HAEMATOMA [None]
  - JOINT DISLOCATION [None]
  - HYPOAESTHESIA [None]
  - SUBCUTANEOUS HAEMATOMA [None]
